FAERS Safety Report 25192146 (Version 1)
Quarter: 2025Q2

REPORT INFORMATION
  Report Type: Spontaneous
  Country: US (occurrence: None)
  Receive Date: 20250413
  Receipt Date: 20250413
  Transmission Date: 20250717
  Serious: Yes (Other)
  Sender: FDA-CTU
  Company Number: None

PATIENT
  Age: 34 Year
  Sex: Male
  Weight: 85.5 kg

DRUGS (1)
  1. FINASTERIDE [Suspect]
     Active Substance: FINASTERIDE
     Dates: start: 20200101, end: 20230201

REACTIONS (4)
  - Insomnia [None]
  - Brain fog [None]
  - Apathy [None]
  - Fatigue [None]

NARRATIVE: CASE EVENT DATE: 20230101
